FAERS Safety Report 6107445-2 (Version None)
Quarter: 2009Q1

REPORT INFORMATION
  Report Type: 
  Country: None (occurrence: None)
  Receive Date: 20090309
  Receipt Date: 20090227
  Transmission Date: 20090719
  Serious: Yes (Death, Hospitalization)
  Sender: FDA-Public Use
  Company Number: US-AMGEN-US317881

PATIENT
  Sex: Male

DRUGS (5)
  1. PANITUMUMAB [Suspect]
     Indication: SQUAMOUS CELL CARCINOMA
     Route: 042
     Dates: start: 20080922, end: 20081013
  2. DOCETAXEL [Concomitant]
     Route: 042
  3. CISPLATIN [Concomitant]
     Route: 042
  4. ZOLEDRONIC ACID [Concomitant]
     Route: 042
  5. PEGFILGRASTIM [Concomitant]
     Route: 058

REACTIONS (4)
  - BLOOD CREATINE INCREASED [None]
  - DEHYDRATION [None]
  - HYPOTENSION [None]
  - RENAL FAILURE ACUTE [None]
